FAERS Safety Report 4399387-8 (Version None)
Quarter: 2004Q2

REPORT INFORMATION
  Report Type: 
  Country: None (occurrence: None)
  Receive Date: 20040607
  Receipt Date: 20040420
  Transmission Date: 20050107
  Serious: No
  Sender: FDA-Public Use
  Company Number: US-SHR-04-024364

PATIENT
  Age: 65 Year
  Sex: Female
  Weight: 82.5 kg

DRUGS (8)
  1. CAMPATH [Suspect]
     Dosage: 3 MG, 1 DOSE; 10 MG
     Dates: start: 20040401, end: 20040401
  2. CAMPATH [Suspect]
     Dosage: 3 MG, 1 DOSE; 10 MG
     Dates: start: 20040401
  3. TYLENOL [Concomitant]
  4. DIPHENHDYRAMINE (DIPHENHYDRAMINE) [Concomitant]
  5. SOLU-MEDROL [Concomitant]
  6. FAMVIR [Concomitant]
  7. ALLOPURINOL [Concomitant]
  8. BACTRIM [Concomitant]

REACTIONS (1)
  - PARAESTHESIA [None]
